FAERS Safety Report 25710863 (Version 1)
Quarter: 2025Q3

REPORT INFORMATION
  Report Type: Spontaneous
  Country: US (occurrence: US)
  Receive Date: 20250821
  Receipt Date: 20250821
  Transmission Date: 20251020
  Serious: No
  Sender: SANOFI AVENTIS
  Company Number: US-SA-2025SA247242

PATIENT
  Age: 57 Year
  Sex: Female
  Weight: 74.09 kg

DRUGS (9)
  1. DUPIXENT [Suspect]
     Active Substance: DUPILUMAB
     Indication: Urticaria
     Dosage: 300 MG, QOW
     Route: 058
     Dates: end: 202508
  2. XOLAIR [Concomitant]
     Active Substance: OMALIZUMAB
  3. LYRICA [Concomitant]
     Active Substance: PREGABALIN
  4. VITAMIN D2 [Concomitant]
     Active Substance: ERGOCALCIFEROL
  5. MONTELUKAST SODIUM [Concomitant]
     Active Substance: MONTELUKAST SODIUM
  6. FAMOTIDINE [Concomitant]
     Active Substance: FAMOTIDINE
  7. XIIDRA [Concomitant]
     Active Substance: LIFITEGRAST
  8. TESTOSTERONE PROPIONATE [Concomitant]
     Active Substance: TESTOSTERONE PROPIONATE
  9. PROGESTERONE [Concomitant]
     Active Substance: PROGESTERONE

REACTIONS (3)
  - Febrile infection [Recovered/Resolved]
  - Urticaria [Unknown]
  - Product use in unapproved indication [Unknown]

NARRATIVE: CASE EVENT DATE: 20250801
